FAERS Safety Report 13745852 (Version 1)
Quarter: 2017Q3

REPORT INFORMATION
  Report Type: Spontaneous
  Country: US (occurrence: US)
  Receive Date: 20170712
  Receipt Date: 20170712
  Transmission Date: 20171127
  Serious: No
  Sender: FDA-Public Use
  Company Number: US-GLAXOSMITHKLINE-US2017GSK107080

PATIENT
  Sex: Female

DRUGS (2)
  1. FLOVENT [Suspect]
     Active Substance: FLUTICASONE PROPIONATE
     Indication: PULMONARY FIBROSIS
  2. OXYGEN. [Suspect]
     Active Substance: OXYGEN
     Indication: PULMONARY FIBROSIS
     Dosage: UNK, CO

REACTIONS (3)
  - Dysphonia [Unknown]
  - Product use in unapproved indication [Unknown]
  - Off label use [Unknown]
